FAERS Safety Report 15223065 (Version 1)
Quarter: 2018Q3

REPORT INFORMATION
  Report Type: Spontaneous
  Country: US (occurrence: US)
  Receive Date: 20180731
  Receipt Date: 20180731
  Transmission Date: 20181010
  Serious: Yes (Other)
  Sender: FDA-Public Use
  Company Number: US-ALKERMES INC.-ALK-2018-003931

PATIENT
  Age: 64 Year
  Sex: Male

DRUGS (2)
  1. FENTANYL. [Concomitant]
     Active Substance: FENTANYL
     Indication: DRUG DEPENDENCE
     Dosage: UNK
     Route: 003
     Dates: end: 2018
  2. VIVITROL [Suspect]
     Active Substance: NALTREXONE
     Indication: DRUG DEPENDENCE
     Dosage: 380 MG, QMO
     Route: 030
     Dates: start: 2018

REACTIONS (5)
  - Spinal pain [Not Recovered/Not Resolved]
  - Internal haemorrhage [Not Recovered/Not Resolved]
  - Withdrawal syndrome [Not Recovered/Not Resolved]
  - Insomnia [Recovered/Resolved]
  - Device breakage [Not Recovered/Not Resolved]

NARRATIVE: CASE EVENT DATE: 20180723
